FAERS Safety Report 8738335 (Version 2)
Quarter: 2013Q4

REPORT INFORMATION
  Report Type: Spontaneous
  Country: BR (occurrence: BR)
  Receive Date: 20120823
  Receipt Date: 20131230
  Transmission Date: 20140711
  Serious: Yes (Hospitalization, Other)
  Sender: FDA-Public Use
  Company Number: BR-JNJFOC-20120808928

PATIENT
  Sex: Female
  Weight: 60 kg

DRUGS (10)
  1. HALDOL [Suspect]
     Indication: AGITATION
     Route: 048
     Dates: start: 2010
  2. HALDOL [Suspect]
     Indication: AGITATION
     Dosage: ONE TABLET/NIGHT
     Route: 048
     Dates: start: 2006, end: 2010
  3. HALDOL [Suspect]
     Indication: DEMENTIA ALZHEIMER^S TYPE
     Route: 048
     Dates: start: 2010
  4. HALDOL [Suspect]
     Indication: DEMENTIA ALZHEIMER^S TYPE
     Dosage: ONE TABLET/NIGHT
     Route: 048
     Dates: start: 2006, end: 2010
  5. LOSARTAN [Suspect]
     Indication: HYPERTENSION
     Route: 065
     Dates: start: 2007, end: 20120801
  6. ^BLOOD PRESSURE^ MEDICATION [Suspect]
     Indication: BLOOD PRESSURE
     Route: 065
     Dates: start: 2007, end: 20120801
  7. HIGROTON [Suspect]
     Indication: BLOOD PRESSURE
     Route: 065
     Dates: start: 2007, end: 20120801
  8. PONDERA [Suspect]
     Indication: PRODUCT USED FOR UNKNOWN INDICATION
     Route: 065
  9. LEVOTHYROXINE SODIUM [Suspect]
     Indication: PRODUCT USED FOR UNKNOWN INDICATION
     Route: 065
  10. LEVOTHYROXINE SODIUM [Suspect]
     Indication: PRODUCT USED FOR UNKNOWN INDICATION
     Route: 065

REACTIONS (8)
  - Syncope [Recovered/Resolved]
  - Urinary tract infection [Recovered/Resolved]
  - Agitation [Recovered/Resolved]
  - Eye pruritus [Recovered/Resolved]
  - Insomnia [Recovered/Resolved]
  - Swelling [Recovered/Resolved]
  - Constipation [Recovered/Resolved]
  - Haematochezia [Recovered/Resolved]
